FAERS Safety Report 17400115 (Version 1)
Quarter: 2020Q1

REPORT INFORMATION
  Report Type: Spontaneous
  Country: US (occurrence: US)
  Receive Date: 20200211
  Receipt Date: 20200211
  Transmission Date: 20200409
  Serious: Yes (Other)
  Sender: FDA-Public Use
  Company Number: US-ACCORD-172101

PATIENT
  Age: 71 Year
  Sex: Male

DRUGS (8)
  1. ACETYLSALICYLIC ACID [Concomitant]
     Active Substance: ASPIRIN
  2. ATOVAQUONE. [Concomitant]
     Active Substance: ATOVAQUONE
  3. AMLODIPINE [Concomitant]
     Active Substance: AMLODIPINE BESYLATE
  4. TAMSULOSIN/TAMSULOSIN HYDROCHLORIDE [Concomitant]
     Active Substance: TAMSULOSIN HYDROCHLORIDE
  5. ATORVASTATIN/ATORVASTATIN CALCIUM [Suspect]
     Active Substance: ATORVASTATIN CALCIUM
     Indication: PRODUCT USED FOR UNKNOWN INDICATION
     Dosage: FOR OVER 10 YEARS
  6. FAMOTIDINE. [Concomitant]
     Active Substance: FAMOTIDINE
  7. METOPROLOL. [Concomitant]
     Active Substance: METOPROLOL
  8. DOCUSATE SODIUM/SENNA ALEXANDRINA [Concomitant]

REACTIONS (1)
  - Immune-mediated myositis [Recovered/Resolved]
